FAERS Safety Report 4871965-9 (Version None)
Quarter: 2005Q4

REPORT INFORMATION
  Report Type: 
  Country: None (occurrence: None)
  Receive Date: 20051230
  Receipt Date: 20051220
  Transmission Date: 20060501
  Serious: Yes (Hospitalization)
  Sender: FDA-Public Use
  Company Number: 2005170316

PATIENT
  Age: 38 Year
  Sex: Male

DRUGS (1)
  1. UNISOM [Suspect]
     Dosage: 32 SLEEPGELS ONCE, ORAL
     Route: 048
     Dates: start: 20051220, end: 20051220

REACTIONS (2)
  - APHASIA [None]
  - OVERDOSE [None]
